FAERS Safety Report 6024526-2 (Version None)
Quarter: 2008Q4

REPORT INFORMATION
  Report Type: 
  Country: None (occurrence: None)
  Receive Date: 20081231
  Receipt Date: 20081001
  Transmission Date: 20090506
  Serious: No
  Sender: FDA-Public Use
  Company Number: US-BRISTOL-MYERS SQUIBB COMPANY-14355002

PATIENT
  Age: 48 Year
  Sex: Female
  Weight: 45 kg

DRUGS (5)
  1. ORENCIA [Suspect]
     Indication: RHEUMATOID ARTHRITIS
  2. DARVOCET [Concomitant]
  3. FOSAMAX [Concomitant]
  4. CALCIUM [Concomitant]
  5. ZOLOFT [Concomitant]

REACTIONS (1)
  - URINARY TRACT INFECTION [None]
